FAERS Safety Report 19885229 (Version 2)
Quarter: 2021Q4

REPORT INFORMATION
  Report Type: Spontaneous
  Country: US (occurrence: US)
  Receive Date: 20210927
  Receipt Date: 20211011
  Transmission Date: 20220303
  Serious: No
  Sender: FDA-Public Use
  Company Number: US-ENCUBE-000103

PATIENT
  Sex: Male

DRUGS (1)
  1. DICLOFENAC SODIUM [Suspect]
     Active Substance: DICLOFENAC SODIUM
     Indication: Arthralgia
     Dosage: 1.00 % TOPICAL GEL 2 GRAMS FOR THREE TIMES A DAY AND TOTAL HE APPLIED FIVE TIMES
     Route: 061
     Dates: start: 20210910, end: 20210912

REACTIONS (1)
  - Rash [Recovering/Resolving]
